FAERS Safety Report 12287600 (Version 1)
Quarter: 2016Q2

REPORT INFORMATION
  Report Type: Spontaneous
  Country: US (occurrence: US)
  Receive Date: 20160420
  Receipt Date: 20160420
  Transmission Date: 20160815
  Serious: Yes (Death, Other)
  Sender: FDA-Public Use
  Company Number: US-UNITED THERAPEUTICS-UNT-2015-016774

PATIENT
  Age: 57 Year
  Sex: Female

DRUGS (1)
  1. TYVASO [Suspect]
     Active Substance: TREPROSTINIL
     Indication: PULMONARY ARTERIAL HYPERTENSION
     Dosage: 54 ?G, QID
     Dates: start: 20150512

REACTIONS (4)
  - Unresponsive to stimuli [Unknown]
  - Syncope [Unknown]
  - Device issue [Unknown]
  - Hypoxia [Fatal]

NARRATIVE: CASE EVENT DATE: 201507
